FAERS Safety Report 13755581 (Version 1)
Quarter: 2017Q3

REPORT INFORMATION
  Report Type: Spontaneous
  Country: CZ (occurrence: CZ)
  Receive Date: 20170714
  Receipt Date: 20170714
  Transmission Date: 20171127
  Serious: Yes (Hospitalization)
  Sender: FDA-Public Use
  Company Number: CZ-ORION CORPORATION ORION PHARMA-TREX2017-2039

PATIENT
  Age: 61 Year
  Sex: Male

DRUGS (1)
  1. METHOTREXATE. [Suspect]
     Active Substance: METHOTREXATE
     Route: 065

REACTIONS (4)
  - Retroperitoneal fibrosis [Unknown]
  - Immunoglobulin G4 related disease [Unknown]
  - Aortitis [Unknown]
  - Drug ineffective [Unknown]
